FAERS Safety Report 24928504 (Version 2)
Quarter: 2025Q1

REPORT INFORMATION
  Report Type: Report from Study
  Country: US (occurrence: US)
  Receive Date: 20250205
  Receipt Date: 20250218
  Transmission Date: 20250409
  Serious: Yes (Other)
  Sender: ABBVIE
  Company Number: US-ABBVIE-6114463

PATIENT
  Age: 53 Year
  Sex: Female

DRUGS (1)
  1. SKYRIZI [Suspect]
     Active Substance: RISANKIZUMAB-RZAA
     Indication: Crohn^s disease
     Route: 058
     Dates: start: 202404

REACTIONS (5)
  - Small intestinal obstruction [Recovered/Resolved]
  - Influenza [Recovered/Resolved]
  - Nasal congestion [Unknown]
  - Biliary obstruction [Unknown]
  - Hernia [Unknown]

NARRATIVE: CASE EVENT DATE: 20241201
